FAERS Safety Report 15605082 (Version 1)
Quarter: 2018Q4

REPORT INFORMATION
  Report Type: Spontaneous
  Country: US (occurrence: US)
  Receive Date: 20181112
  Receipt Date: 20181112
  Transmission Date: 20190205
  Serious: No
  Sender: FDA-Public Use
  Company Number: US-009507513-1810USA013521

PATIENT
  Sex: Female

DRUGS (1)
  1. NEXPLANON [Suspect]
     Active Substance: ETONOGESTREL
     Dosage: 1 DOSAGE FORM, IN UNSPECIFIED ARM
     Route: 059

REACTIONS (2)
  - Menstruation irregular [Not Recovered/Not Resolved]
  - Feeling abnormal [Not Recovered/Not Resolved]
